FAERS Safety Report 10037221 (Version 1)
Quarter: 2014Q1

REPORT INFORMATION
  Report Type: Spontaneous
  Country: US (occurrence: None)
  Receive Date: 20140325
  Receipt Date: 20140325
  Transmission Date: 20141002
  Serious: Yes (Other)
  Sender: FDA-Public Use
  Company Number: None

PATIENT
  Age: 15 Year
  Sex: Female
  Weight: 58.97 kg

DRUGS (1)
  1. DELSYM [Suspect]
     Indication: COUGH
     Dosage: EVERY 12 HOURS?
     Route: 048
     Dates: start: 20140319, end: 20140322

REACTIONS (2)
  - Fall [None]
  - Palpitations [None]
